FAERS Safety Report 6822704 (Version 6)
Quarter: 2013Q1

REPORT INFORMATION
  Report Type: Spontaneous
  Country: US (occurrence: None)
  Receive Date: 20081117
  Receipt Date: 20121218
  Transmission Date: 20140127
  Serious: Yes (Hospitalization, Other)
  Sender: FDA-Public Use
  Company Number: 2008-04162

PATIENT
  Age: 66 Year
  Sex: Female
  Weight: 68.3 kg

DRUGS (11)
  1. VELCADE [Suspect]
     Indication: NON-HODGKIN^S LYMPHOMA
     Route: 042
     Dates: start: 20080623, end: 20080926
  2. BENDAMUSTINE (BENDAMUSTINE) (BENDAMUSTINE) [Suspect]
     Indication: NON-HODGKIN^S LYMPHOMA
     Route: 042
     Dates: start: 20080623, end: 20080919
  3. RITUXIMAB (RITUXIMAB) [Suspect]
     Indication: NON-HODGKIN^S LYMPHOMA
     Route: 042
     Dates: start: 20080623, end: 20080916
  4. OS-CAL + D (COLECALCIFEROL, CALICUM CARBONATE) [Concomitant]
  5. GLUCOSAMINE (GLUCOSAMINE) [Concomitant]
  6. CENTRUM SILVER (TOCOPHERYL ACETATE, CALCIUM, ZINC, MINERALS NOS, VITAMINS NOS, VITAMIN B NOS, RETINO [Concomitant]
  7. VITAMIN B12 [Concomitant]
  8. COUMADIN [Concomitant]
  9. CELEBREX (CELECOXIB) [Concomitant]
  10. ZYRTEC [Concomitant]
  11. BENADRYL (SODIUM CITRATE, AMMONIUM CHLORIDE, MENTHOL, DIPHENHYDRAMINE HYDROCHLORIDE) [Concomitant]

REACTIONS (12)
  - Psoas abscess [None]
  - Intervertebral discitis [None]
  - Staphylococcal bacteraemia [None]
  - Intervertebral disc space narrowing [None]
  - Osteomyelitis [None]
  - Dysstasia [None]
  - Back pain [None]
  - Pain in extremity [None]
  - Intervertebral disc compression [None]
  - Staphylococcal abscess [None]
  - Blood lactate dehydrogenase increased [None]
  - Muscle spasms [None]
